FAERS Safety Report 23952042 (Version 1)
Quarter: 2024Q2

REPORT INFORMATION
  Report Type: Spontaneous
  Country: US (occurrence: None)
  Receive Date: 20240606
  Receipt Date: 20240606
  Transmission Date: 20240716
  Serious: No
  Sender: FDA-Public Use
  Company Number: None

PATIENT
  Age: 59 Year

DRUGS (2)
  1. RINVOQ [Suspect]
     Active Substance: UPADACITINIB
     Dates: start: 20231215, end: 20240515
  2. FASENRA [Suspect]
     Active Substance: BENRALIZUMAB

REACTIONS (1)
  - Rash [None]

NARRATIVE: CASE EVENT DATE: 20240515
